FAERS Safety Report 24353618 (Version 1)
Quarter: 2024Q3

REPORT INFORMATION
  Report Type: Spontaneous
  Country: FI (occurrence: FI)
  Receive Date: 20240923
  Receipt Date: 20240923
  Transmission Date: 20241016
  Serious: Yes (Other)
  Sender: MYLAN
  Company Number: FI-TEVA-VS-3237626

PATIENT
  Age: 79 Year
  Sex: Male

DRUGS (3)
  1. TELMISARTAN [Suspect]
     Active Substance: TELMISARTAN
     Indication: Product used for unknown indication
     Dosage: 40 MILLIGRAM
     Route: 065
  2. TELMISARTAN [Suspect]
     Active Substance: TELMISARTAN
     Dosage: 20 MILLIGRAM
     Route: 065
  3. TAMSULOSIN [Suspect]
     Active Substance: TAMSULOSIN
     Indication: Product used for unknown indication
     Dosage: UNK
     Route: 048

REACTIONS (24)
  - Angioedema [Unknown]
  - Bladder spasm [Unknown]
  - Memory impairment [Unknown]
  - Sleep disorder [Unknown]
  - Nervous system disorder [Unknown]
  - Tremor [Unknown]
  - Hypertension [Unknown]
  - Vasodilatation [Unknown]
  - Sleep apnoea syndrome [Unknown]
  - Urinary incontinence [Unknown]
  - Limb discomfort [Unknown]
  - Nocturia [Unknown]
  - Lip swelling [Unknown]
  - Ataxia [Unknown]
  - Herpes virus infection [Unknown]
  - Dysuria [Unknown]
  - Palpitations [Unknown]
  - Pain [Unknown]
  - Nervousness [Unknown]
  - Peripheral swelling [Unknown]
  - Heart rate irregular [Unknown]
  - Initial insomnia [Unknown]
  - Vertigo [Unknown]
  - Wrong technique in product usage process [Unknown]

NARRATIVE: CASE EVENT DATE: 20240801
